FAERS Safety Report 11402963 (Version 1)
Quarter: 2015Q3

REPORT INFORMATION
  Report Type: Spontaneous
  Country: IT (occurrence: IT)
  Receive Date: 20150821
  Receipt Date: 20150821
  Transmission Date: 20151125
  Serious: Yes (Hospitalization, Other)
  Sender: FDA-Public Use
  Company Number: IT-DRREDDYS-USA/ITL/15/0050188

PATIENT
  Age: 18 Year
  Sex: Male

DRUGS (1)
  1. SILDENAFIL. [Suspect]
     Active Substance: SILDENAFIL
     Indication: ERECTILE DYSFUNCTION
     Route: 065

REACTIONS (2)
  - Generalised tonic-clonic seizure [Unknown]
  - Drug interaction [Unknown]
